FAERS Safety Report 18047633 (Version 3)
Quarter: 2021Q2

REPORT INFORMATION
  Report Type: Spontaneous
  Country: US (occurrence: US)
  Receive Date: 20200721
  Receipt Date: 20210623
  Transmission Date: 20210717
  Serious: No
  Sender: FDA-Public Use
  Company Number: US-BIOGEN-2020BI00889297

PATIENT
  Sex: Female

DRUGS (3)
  1. TECFIDERA [Suspect]
     Active Substance: DIMETHYL FUMARATE
     Route: 048
     Dates: start: 202006
  2. TECFIDERA [Suspect]
     Active Substance: DIMETHYL FUMARATE
     Indication: MULTIPLE SCLEROSIS
     Dosage: PATIENT STATED SHE WAS TAKING THE 120 MG ONCE A DAY AT DINNER FOR 2 WEEKS. PATIENT STATED THIS SA...
     Route: 065
     Dates: start: 20200613
  3. TECFIDERA [Suspect]
     Active Substance: DIMETHYL FUMARATE
     Dosage: MAINTENANCE DOSE
     Route: 048
     Dates: start: 20200605

REACTIONS (4)
  - Flushing [Recovered/Resolved]
  - Oropharyngeal discomfort [Unknown]
  - Feeling abnormal [Unknown]
  - Stress [Unknown]
